FAERS Safety Report 10743754 (Version 2)
Quarter: 2015Q1

REPORT INFORMATION
  Report Type: Spontaneous
  Country: US (occurrence: US)
  Receive Date: 20150128
  Receipt Date: 20150216
  Transmission Date: 20150721
  Serious: Yes (Death)
  Sender: FDA-Public Use
  Company Number: US-PAR PHARMACEUTICAL, INC-2015SCPR009982

PATIENT
  Age: 33 Year
  Sex: Male

DRUGS (3)
  1. DROPERIDOL W/FENTANYL CITRATE [Suspect]
     Active Substance: DROPERIDOL\FENTANYL CITRATE
     Indication: PRODUCT USED FOR UNKNOWN INDICATION
     Dosage: UNK, UNKNOWN, INGST+ UNK
  2. DIAZEPAM. [Suspect]
     Active Substance: DIAZEPAM
     Indication: PRODUCT USED FOR UNKNOWN INDICATION
     Dosage: UNK, UNKNOWN, INGST+ UNK
  3. COCAINE [Suspect]
     Active Substance: COCAINE
     Indication: PRODUCT USED FOR UNKNOWN INDICATION
     Dosage: UNK, UNKNOWN, INGST+ UNK

REACTIONS (2)
  - Drug abuse [Fatal]
  - Death [Fatal]

NARRATIVE: CASE EVENT DATE: 2013
